FAERS Safety Report 26063959 (Version 1)
Quarter: 2025Q4

REPORT INFORMATION
  Report Type: Spontaneous
  Country: EU (occurrence: EU)
  Receive Date: 20251119
  Receipt Date: 20251119
  Transmission Date: 20260118
  Serious: Yes (Hospitalization)
  Sender: MYLAN
  Company Number: EU-MYLANLABS-2025M1095083

PATIENT
  Age: 41 Year
  Sex: Male

DRUGS (108)
  1. PREDNISONE [Suspect]
     Active Substance: PREDNISONE
     Indication: Diffuse large B-cell lymphoma
     Dosage: UNK, PART OF FIRST-LINE CHEMOTHERAPY IN DA-EPOCH SCHEME
  2. PREDNISONE [Suspect]
     Active Substance: PREDNISONE
     Indication: Mediastinal mass
     Dosage: UNK, PART OF FIRST-LINE CHEMOTHERAPY IN DA-EPOCH SCHEME
     Route: 065
  3. PREDNISONE [Suspect]
     Active Substance: PREDNISONE
     Dosage: UNK, PART OF FIRST-LINE CHEMOTHERAPY IN DA-EPOCH SCHEME
     Route: 065
  4. PREDNISONE [Suspect]
     Active Substance: PREDNISONE
     Dosage: UNK, PART OF FIRST-LINE CHEMOTHERAPY IN DA-EPOCH SCHEME
  5. OXALIPLATIN [Suspect]
     Active Substance: OXALIPLATIN
     Indication: Diffuse large B-cell lymphoma
     Dosage: UNK, PART OF SECOND-LINE CHEMOTHERAPY IN R-DHAOX REGIMEN
  6. OXALIPLATIN [Suspect]
     Active Substance: OXALIPLATIN
     Indication: Mediastinal mass
     Dosage: UNK, PART OF SECOND-LINE CHEMOTHERAPY IN R-DHAOX REGIMEN
     Route: 065
  7. OXALIPLATIN [Suspect]
     Active Substance: OXALIPLATIN
     Dosage: UNK, PART OF SECOND-LINE CHEMOTHERAPY IN R-DHAOX REGIMEN
     Route: 065
  8. OXALIPLATIN [Suspect]
     Active Substance: OXALIPLATIN
     Dosage: UNK, PART OF SECOND-LINE CHEMOTHERAPY IN R-DHAOX REGIMEN
  9. LEVOFLOXACIN [Suspect]
     Active Substance: LEVOFLOXACIN
     Indication: Tuberculosis
     Dosage: UNK
  10. LEVOFLOXACIN [Suspect]
     Active Substance: LEVOFLOXACIN
     Dosage: UNK
     Route: 065
  11. LEVOFLOXACIN [Suspect]
     Active Substance: LEVOFLOXACIN
     Dosage: UNK
     Route: 065
  12. LEVOFLOXACIN [Suspect]
     Active Substance: LEVOFLOXACIN
     Dosage: UNK
  13. ETOPOSIDE PHOSPHATE [Suspect]
     Active Substance: ETOPOSIDE PHOSPHATE
     Indication: Diffuse large B-cell lymphoma
     Dosage: UNK, PART OF FIRST-LINE CHEMOTHERAPY IN DA-EPOCH SCHEME
  14. ETOPOSIDE PHOSPHATE [Suspect]
     Active Substance: ETOPOSIDE PHOSPHATE
     Indication: Mediastinal mass
     Dosage: UNK, PART OF FIRST-LINE CHEMOTHERAPY IN DA-EPOCH SCHEME
     Route: 065
  15. ETOPOSIDE PHOSPHATE [Suspect]
     Active Substance: ETOPOSIDE PHOSPHATE
     Dosage: UNK, PART OF FIRST-LINE CHEMOTHERAPY IN DA-EPOCH SCHEME
     Route: 065
  16. ETOPOSIDE PHOSPHATE [Suspect]
     Active Substance: ETOPOSIDE PHOSPHATE
     Dosage: UNK, PART OF FIRST-LINE CHEMOTHERAPY IN DA-EPOCH SCHEME
  17. VINCRISTINE SULFATE [Suspect]
     Active Substance: VINCRISTINE SULFATE
     Indication: Diffuse large B-cell lymphoma
     Dosage: UNK, PART OF FIRST-LINE CHEMOTHERAPY IN DA-EPOCH SCHEME
  18. VINCRISTINE SULFATE [Suspect]
     Active Substance: VINCRISTINE SULFATE
     Indication: Mediastinal mass
     Dosage: UNK, PART OF FIRST-LINE CHEMOTHERAPY IN DA-EPOCH SCHEME
     Route: 065
  19. VINCRISTINE SULFATE [Suspect]
     Active Substance: VINCRISTINE SULFATE
     Dosage: UNK, PART OF FIRST-LINE CHEMOTHERAPY IN DA-EPOCH SCHEME
     Route: 065
  20. VINCRISTINE SULFATE [Suspect]
     Active Substance: VINCRISTINE SULFATE
     Dosage: UNK, PART OF FIRST-LINE CHEMOTHERAPY IN DA-EPOCH SCHEME
  21. CYCLOPHOSPHAMIDE [Suspect]
     Active Substance: CYCLOPHOSPHAMIDE
     Indication: Diffuse large B-cell lymphoma
     Dosage: UNK, PART OF FIRST-LINE CHEMOTHERAPY IN DA-EPOCH SCHEME
  22. CYCLOPHOSPHAMIDE [Suspect]
     Active Substance: CYCLOPHOSPHAMIDE
     Indication: Mediastinal mass
     Dosage: UNK, PART OF FIRST-LINE CHEMOTHERAPY IN DA-EPOCH SCHEME
  23. CYCLOPHOSPHAMIDE [Suspect]
     Active Substance: CYCLOPHOSPHAMIDE
     Indication: Bone marrow conditioning regimen
     Dosage: UNK, PART OF FIRST-LINE CHEMOTHERAPY IN DA-EPOCH SCHEME
     Route: 065
  24. CYCLOPHOSPHAMIDE [Suspect]
     Active Substance: CYCLOPHOSPHAMIDE
     Dosage: UNK, PART OF FIRST-LINE CHEMOTHERAPY IN DA-EPOCH SCHEME
     Route: 065
  25. CYCLOPHOSPHAMIDE [Suspect]
     Active Substance: CYCLOPHOSPHAMIDE
     Dosage: 500 MILLIGRAM/SQ. METER, ON DAYS 1-3 AS A CONDITIONING THERAPY
  26. CYCLOPHOSPHAMIDE [Suspect]
     Active Substance: CYCLOPHOSPHAMIDE
     Dosage: 500 MILLIGRAM/SQ. METER, ON DAYS 1-3 AS A CONDITIONING THERAPY
  27. CYCLOPHOSPHAMIDE [Suspect]
     Active Substance: CYCLOPHOSPHAMIDE
     Dosage: 500 MILLIGRAM/SQ. METER, ON DAYS 1-3 AS A CONDITIONING THERAPY
     Route: 065
  28. CYCLOPHOSPHAMIDE [Suspect]
     Active Substance: CYCLOPHOSPHAMIDE
     Dosage: 500 MILLIGRAM/SQ. METER, ON DAYS 1-3 AS A CONDITIONING THERAPY
     Route: 065
  29. DOXORUBICIN HYDROCHLORIDE [Suspect]
     Active Substance: DOXORUBICIN HYDROCHLORIDE
     Indication: Diffuse large B-cell lymphoma
     Dosage: UNK, PART OF FIRST-LINE CHEMOTHERAPY IN DA-EPOCH SCHEME
  30. DOXORUBICIN HYDROCHLORIDE [Suspect]
     Active Substance: DOXORUBICIN HYDROCHLORIDE
     Indication: Mediastinal mass
     Dosage: UNK, PART OF FIRST-LINE CHEMOTHERAPY IN DA-EPOCH SCHEME
     Route: 065
  31. DOXORUBICIN HYDROCHLORIDE [Suspect]
     Active Substance: DOXORUBICIN HYDROCHLORIDE
     Dosage: UNK, PART OF FIRST-LINE CHEMOTHERAPY IN DA-EPOCH SCHEME
     Route: 065
  32. DOXORUBICIN HYDROCHLORIDE [Suspect]
     Active Substance: DOXORUBICIN HYDROCHLORIDE
     Dosage: UNK, PART OF FIRST-LINE CHEMOTHERAPY IN DA-EPOCH SCHEME
  33. RITUXIMAB [Suspect]
     Active Substance: RITUXIMAB
     Indication: Diffuse large B-cell lymphoma
     Dosage: UNK, PART OF FIRST-LINE CHEMOTHERAPY IN DA-EPOCH SCHEME
  34. RITUXIMAB [Suspect]
     Active Substance: RITUXIMAB
     Indication: Mediastinal mass
     Dosage: UNK, PART OF FIRST-LINE CHEMOTHERAPY IN DA-EPOCH SCHEME
  35. RITUXIMAB [Suspect]
     Active Substance: RITUXIMAB
     Dosage: UNK, PART OF FIRST-LINE CHEMOTHERAPY IN DA-EPOCH SCHEME
     Route: 065
  36. RITUXIMAB [Suspect]
     Active Substance: RITUXIMAB
     Dosage: UNK, PART OF FIRST-LINE CHEMOTHERAPY IN DA-EPOCH SCHEME
     Route: 065
  37. RITUXIMAB [Suspect]
     Active Substance: RITUXIMAB
     Dosage: UNK, SECOND-LINE CHEMOTHERAPY IN R-DHAOX REGIMEN
  38. RITUXIMAB [Suspect]
     Active Substance: RITUXIMAB
     Dosage: UNK, SECOND-LINE CHEMOTHERAPY IN R-DHAOX REGIMEN
  39. RITUXIMAB [Suspect]
     Active Substance: RITUXIMAB
     Dosage: UNK, SECOND-LINE CHEMOTHERAPY IN R-DHAOX REGIMEN
     Route: 065
  40. RITUXIMAB [Suspect]
     Active Substance: RITUXIMAB
     Dosage: UNK, SECOND-LINE CHEMOTHERAPY IN R-DHAOX REGIMEN
     Route: 065
  41. DEXAMETHASONE [Suspect]
     Active Substance: DEXAMETHASONE
     Indication: Diffuse large B-cell lymphoma
     Dosage: UNK, PART OF SECOND-LINE CHEMOTHERAPY IN R-DHAOX REGIMEN
  42. DEXAMETHASONE [Suspect]
     Active Substance: DEXAMETHASONE
     Indication: Mediastinal mass
     Dosage: UNK, PART OF SECOND-LINE CHEMOTHERAPY IN R-DHAOX REGIMEN
     Route: 065
  43. DEXAMETHASONE [Suspect]
     Active Substance: DEXAMETHASONE
     Dosage: UNK, PART OF SECOND-LINE CHEMOTHERAPY IN R-DHAOX REGIMEN
     Route: 065
  44. DEXAMETHASONE [Suspect]
     Active Substance: DEXAMETHASONE
     Dosage: UNK, PART OF SECOND-LINE CHEMOTHERAPY IN R-DHAOX REGIMEN
  45. CYTARABINE [Suspect]
     Active Substance: CYTARABINE
     Indication: Diffuse large B-cell lymphoma
     Dosage: UNK, PART OF SECOND-LINE CHEMOTHERAPY IN R-DHAOX REGIMEN
  46. CYTARABINE [Suspect]
     Active Substance: CYTARABINE
     Indication: Mediastinal mass
     Dosage: UNK, PART OF SECOND-LINE CHEMOTHERAPY IN R-DHAOX REGIMEN
     Route: 065
  47. CYTARABINE [Suspect]
     Active Substance: CYTARABINE
     Dosage: UNK, PART OF SECOND-LINE CHEMOTHERAPY IN R-DHAOX REGIMEN
     Route: 065
  48. CYTARABINE [Suspect]
     Active Substance: CYTARABINE
     Dosage: UNK, PART OF SECOND-LINE CHEMOTHERAPY IN R-DHAOX REGIMEN
  49. ISONIAZID [Suspect]
     Active Substance: ISONIAZID
     Indication: Tuberculosis
     Dosage: UNK
  50. ISONIAZID [Suspect]
     Active Substance: ISONIAZID
     Dosage: UNK
     Route: 065
  51. ISONIAZID [Suspect]
     Active Substance: ISONIAZID
     Dosage: UNK
     Route: 065
  52. ISONIAZID [Suspect]
     Active Substance: ISONIAZID
     Dosage: UNK
  53. AXICABTAGENE CILOLEUCEL [Suspect]
     Active Substance: AXICABTAGENE CILOLEUCEL
     Indication: Diffuse large B-cell lymphoma
     Dosage: 68 MILLILITER, INFUSION
  54. AXICABTAGENE CILOLEUCEL [Suspect]
     Active Substance: AXICABTAGENE CILOLEUCEL
     Indication: Mediastinal mass
     Dosage: 68 MILLILITER, INFUSION
     Route: 065
  55. AXICABTAGENE CILOLEUCEL [Suspect]
     Active Substance: AXICABTAGENE CILOLEUCEL
     Indication: Lymphocyte adoptive therapy
     Dosage: 68 MILLILITER, INFUSION
     Route: 065
  56. AXICABTAGENE CILOLEUCEL [Suspect]
     Active Substance: AXICABTAGENE CILOLEUCEL
     Dosage: 68 MILLILITER, INFUSION
  57. TOCILIZUMAB [Concomitant]
     Active Substance: TOCILIZUMAB
     Indication: Cytokine release syndrome
     Dosage: UNK, TWO DOSES OF TOCILIZUMAB
  58. TOCILIZUMAB [Concomitant]
     Active Substance: TOCILIZUMAB
     Dosage: UNK, TWO DOSES OF TOCILIZUMAB
     Route: 065
  59. TOCILIZUMAB [Concomitant]
     Active Substance: TOCILIZUMAB
     Dosage: UNK, TWO DOSES OF TOCILIZUMAB
     Route: 065
  60. TOCILIZUMAB [Concomitant]
     Active Substance: TOCILIZUMAB
     Dosage: UNK, TWO DOSES OF TOCILIZUMAB
  61. ANAKINRA [Concomitant]
     Active Substance: ANAKINRA
     Indication: Immune effector cell-associated neurotoxicity syndrome
     Dosage: UNK
  62. ANAKINRA [Concomitant]
     Active Substance: ANAKINRA
     Dosage: UNK
     Route: 065
  63. ANAKINRA [Concomitant]
     Active Substance: ANAKINRA
     Dosage: UNK
     Route: 065
  64. ANAKINRA [Concomitant]
     Active Substance: ANAKINRA
     Dosage: UNK
  65. FLUDARABINE [Concomitant]
     Active Substance: FLUDARABINE PHOSPHATE
     Indication: Bone marrow conditioning regimen
     Dosage: 30 MILLIGRAM/SQ. METER, ON DAYS 1-3
  66. FLUDARABINE [Concomitant]
     Active Substance: FLUDARABINE PHOSPHATE
     Dosage: 30 MILLIGRAM/SQ. METER, ON DAYS 1-3
     Route: 065
  67. FLUDARABINE [Concomitant]
     Active Substance: FLUDARABINE PHOSPHATE
     Dosage: 30 MILLIGRAM/SQ. METER, ON DAYS 1-3
     Route: 065
  68. FLUDARABINE [Concomitant]
     Active Substance: FLUDARABINE PHOSPHATE
     Dosage: 30 MILLIGRAM/SQ. METER, ON DAYS 1-3
  69. RIFAMPIN [Interacting]
     Active Substance: RIFAMPIN
     Indication: Tuberculosis
     Dosage: 600 MILLIGRAM
  70. RIFAMPIN [Interacting]
     Active Substance: RIFAMPIN
     Dosage: 600 MILLIGRAM
     Route: 065
  71. RIFAMPIN [Interacting]
     Active Substance: RIFAMPIN
     Dosage: 600 MILLIGRAM
     Route: 065
  72. RIFAMPIN [Interacting]
     Active Substance: RIFAMPIN
     Dosage: 600 MILLIGRAM
  73. COVID-19 vaccine [Concomitant]
     Indication: COVID-19 immunisation
     Dosage: UNK
  74. COVID-19 vaccine [Concomitant]
     Dosage: UNK
     Route: 065
  75. COVID-19 vaccine [Concomitant]
     Dosage: UNK
     Route: 065
  76. COVID-19 vaccine [Concomitant]
     Dosage: UNK
  77. SOTROVIMAB [Concomitant]
     Active Substance: SOTROVIMAB
     Indication: COVID-19
     Dosage: UNK, SINGLE DOSE
  78. SOTROVIMAB [Concomitant]
     Active Substance: SOTROVIMAB
     Dosage: UNK, SINGLE DOSE
     Route: 065
  79. SOTROVIMAB [Concomitant]
     Active Substance: SOTROVIMAB
     Dosage: UNK, SINGLE DOSE
     Route: 065
  80. SOTROVIMAB [Concomitant]
     Active Substance: SOTROVIMAB
     Dosage: UNK, SINGLE DOSE
  81. ISONIAZID [Concomitant]
     Active Substance: ISONIAZID
     Indication: Tuberculosis
     Dosage: 300 MILLIGRAM
  82. ISONIAZID [Concomitant]
     Active Substance: ISONIAZID
     Dosage: 300 MILLIGRAM
     Route: 065
  83. ISONIAZID [Concomitant]
     Active Substance: ISONIAZID
     Dosage: 300 MILLIGRAM
     Route: 065
  84. ISONIAZID [Concomitant]
     Active Substance: ISONIAZID
     Dosage: 300 MILLIGRAM
  85. PYRAZINAMIDE [Concomitant]
     Active Substance: PYRAZINAMIDE
     Indication: Tuberculosis
     Dosage: 1500 MILLIGRAM
  86. PYRAZINAMIDE [Concomitant]
     Active Substance: PYRAZINAMIDE
     Dosage: 1500 MILLIGRAM
     Route: 065
  87. PYRAZINAMIDE [Concomitant]
     Active Substance: PYRAZINAMIDE
     Dosage: 1500 MILLIGRAM
     Route: 065
  88. PYRAZINAMIDE [Concomitant]
     Active Substance: PYRAZINAMIDE
     Dosage: 1500 MILLIGRAM
  89. ETHAMBUTOL [Concomitant]
     Active Substance: ETHAMBUTOL HYDROCHLORIDE
     Indication: Tuberculosis
     Dosage: 1200 MILLIGRAM
  90. ETHAMBUTOL [Concomitant]
     Active Substance: ETHAMBUTOL HYDROCHLORIDE
     Dosage: 1200 MILLIGRAM
     Route: 065
  91. ETHAMBUTOL [Concomitant]
     Active Substance: ETHAMBUTOL HYDROCHLORIDE
     Dosage: 1200 MILLIGRAM
     Route: 065
  92. ETHAMBUTOL [Concomitant]
     Active Substance: ETHAMBUTOL HYDROCHLORIDE
     Dosage: 1200 MILLIGRAM
  93. SULFAMETHOXAZOLE\TRIMETHOPRIM [Concomitant]
     Active Substance: SULFAMETHOXAZOLE\TRIMETHOPRIM
     Indication: Prophylaxis
     Dosage: UNK
  94. SULFAMETHOXAZOLE\TRIMETHOPRIM [Concomitant]
     Active Substance: SULFAMETHOXAZOLE\TRIMETHOPRIM
     Dosage: UNK
     Route: 065
  95. SULFAMETHOXAZOLE\TRIMETHOPRIM [Concomitant]
     Active Substance: SULFAMETHOXAZOLE\TRIMETHOPRIM
     Dosage: UNK
     Route: 065
  96. SULFAMETHOXAZOLE\TRIMETHOPRIM [Concomitant]
     Active Substance: SULFAMETHOXAZOLE\TRIMETHOPRIM
     Dosage: UNK
  97. AMIKACIN [Concomitant]
     Active Substance: AMIKACIN
     Indication: Evidence based treatment
     Dosage: UNK
  98. AMIKACIN [Concomitant]
     Active Substance: AMIKACIN
     Dosage: UNK
     Route: 065
  99. AMIKACIN [Concomitant]
     Active Substance: AMIKACIN
     Dosage: UNK
     Route: 065
  100. AMIKACIN [Concomitant]
     Active Substance: AMIKACIN
     Dosage: UNK
  101. VALACYCLOVIR [Concomitant]
     Active Substance: VALACYCLOVIR HYDROCHLORIDE
     Indication: Prophylaxis
     Dosage: UNK
  102. VALACYCLOVIR [Concomitant]
     Active Substance: VALACYCLOVIR HYDROCHLORIDE
     Dosage: UNK
     Route: 065
  103. VALACYCLOVIR [Concomitant]
     Active Substance: VALACYCLOVIR HYDROCHLORIDE
     Dosage: UNK
     Route: 065
  104. VALACYCLOVIR [Concomitant]
     Active Substance: VALACYCLOVIR HYDROCHLORIDE
     Dosage: UNK
  105. MEROPENEM [Concomitant]
     Active Substance: MEROPENEM
     Indication: Evidence based treatment
     Dosage: UNK
  106. MEROPENEM [Concomitant]
     Active Substance: MEROPENEM
     Dosage: UNK
     Route: 065
  107. MEROPENEM [Concomitant]
     Active Substance: MEROPENEM
     Dosage: UNK
     Route: 065
  108. MEROPENEM [Concomitant]
     Active Substance: MEROPENEM
     Dosage: UNK

REACTIONS (2)
  - Immune effector cell-associated neurotoxicity syndrome [Unknown]
  - Tuberculosis [Recovered/Resolved]
